FAERS Safety Report 15623300 (Version 1)
Quarter: 2018Q4

REPORT INFORMATION
  Report Type: Spontaneous
  Country: JP (occurrence: JP)
  Receive Date: 20181115
  Receipt Date: 20181115
  Transmission Date: 20190205
  Serious: Yes (Death, Other)
  Sender: FDA-Public Use
  Company Number: JP-SPECTRUM PHARMACEUTICALS, INC.-18-F-JP-00412

PATIENT
  Sex: Male

DRUGS (6)
  1. DEXAMETHASONE. [Concomitant]
     Active Substance: DEXAMETHASONE
     Indication: BLASTIC PLASMACYTOID DENDRITIC CELL NEOPLASIA
  2. CARBOPLATIN. [Concomitant]
     Active Substance: CARBOPLATIN
     Indication: BLASTIC PLASMACYTOID DENDRITIC CELL NEOPLASIA
  3. IFOSFAMIDE. [Concomitant]
     Active Substance: IFOSFAMIDE
     Indication: BLASTIC PLASMACYTOID DENDRITIC CELL NEOPLASIA
  4. ETOPOSIDE. [Concomitant]
     Active Substance: ETOPOSIDE
     Indication: BLASTIC PLASMACYTOID DENDRITIC CELL NEOPLASIA
  5. FOLOTYN [Suspect]
     Active Substance: PRALATREXATE
     Dosage: 20 MG/M2, UNK
     Route: 042
  6. FOLOTYN [Suspect]
     Active Substance: PRALATREXATE
     Indication: MYCOSIS FUNGOIDES
     Dosage: 30 MG/M2, UNK
     Route: 042

REACTIONS (7)
  - Rash [Unknown]
  - Blastic plasmacytoid dendritic cell neoplasia [Unknown]
  - Fall [Unknown]
  - Traumatic intracranial haemorrhage [Fatal]
  - Mucous membrane disorder [Recovering/Resolving]
  - Platelet count decreased [Unknown]
  - Off label use [Unknown]
